FAERS Safety Report 4429049-X (Version None)
Quarter: 2004Q3

REPORT INFORMATION
  Report Type: 
  Country: None (occurrence: None)
  Receive Date: 20040818
  Receipt Date: 20040811
  Transmission Date: 20050211
  Serious: Yes (Disabling)
  Sender: FDA-Public Use
  Company Number: GB-MERCK-0408GBR00104

PATIENT
  Age: 77 Year
  Sex: Female
  Weight: 50 kg

DRUGS (4)
  1. FOSAMAX [Suspect]
     Indication: OSTEOPOROSIS
     Route: 048
     Dates: start: 20020601, end: 20030901
  2. BENDROFLUMETHIAZIDE [Concomitant]
     Route: 048
  3. SOTALOL HYDROCHLORIDE [Concomitant]
     Route: 048
  4. VALSARTAN [Concomitant]
     Route: 048

REACTIONS (1)
  - VISUAL ACUITY REDUCED [None]
